FAERS Safety Report 5647517-X (Version None)
Quarter: 2008Q1

REPORT INFORMATION
  Report Type: 
  Country: None (occurrence: None)
  Receive Date: 20080303
  Receipt Date: 20080222
  Transmission Date: 20080703
  Serious: Yes (Death)
  Sender: FDA-Public Use
  Company Number: US-ELI_LILLY_AND_COMPANY-US200802005322

PATIENT
  Sex: Female

DRUGS (3)
  1. CYMBALTA [Suspect]
     Indication: DIABETIC NEUROPATHY
     Dosage: 30 MG, DAILY (1/D)
     Route: 048
  2. DEPAKOTE [Concomitant]
     Dosage: UNK, UNK
     Dates: start: 20070901
  3. FISH OIL [Concomitant]

REACTIONS (1)
  - HEPATIC FAILURE [None]
